FAERS Safety Report 11756847 (Version 1)
Quarter: 2015Q4

REPORT INFORMATION
  Report Type: Spontaneous
  Country: GB (occurrence: GB)
  Receive Date: 20151120
  Receipt Date: 20151120
  Transmission Date: 20160304
  Serious: Yes (Other)
  Sender: FDA-Public Use
  Company Number: GB-ACCORD-035371

PATIENT
  Age: 66 Year
  Sex: Male

DRUGS (5)
  1. VALSARTAN. [Concomitant]
     Active Substance: VALSARTAN
     Dates: start: 20150806
  2. AMLODIPINE [Suspect]
     Active Substance: AMLODIPINE BESYLATE
     Indication: PRODUCT USED FOR UNKNOWN INDICATION
     Dates: start: 20150904
  3. METOPROLOL [Concomitant]
     Active Substance: METOPROLOL
     Dates: start: 20150904
  4. ATORVASTATIN/ATORVASTATIN CALCIUM [Concomitant]
     Dates: start: 20150806
  5. INDAPAMIDE/INDAPAMIDE HEMIHYDRATE [Concomitant]
     Dosage: EACH MORNING
     Dates: start: 20150922

REACTIONS (1)
  - Lip swelling [Recovered/Resolved]

NARRATIVE: CASE EVENT DATE: 20151026
